FAERS Safety Report 5322287-3 (Version None)
Quarter: 2007Q2

REPORT INFORMATION
  Report Type: 
  Country: None (occurrence: None)
  Receive Date: 20070511
  Receipt Date: 20070507
  Transmission Date: 20071010
  Serious: Yes (Hospitalization)
  Sender: FDA-Public Use
  Company Number: B0457572A

PATIENT
  Age: 53 Year
  Sex: Female
  Weight: 112.5 kg

DRUGS (6)
  1. PLACEBO [Suspect]
     Dates: start: 20070117
  2. ZOFRAN [Suspect]
     Dosage: 16MG PER DAY
     Route: 048
     Dates: start: 20070117
  3. DEXAMETHASONE 0.5MG TAB [Suspect]
     Dosage: 8MG PER DAY
     Route: 042
     Dates: start: 20070117
  4. CYCLOPHOSPHAMIDE [Suspect]
     Indication: CHEMOTHERAPY
     Route: 042
     Dates: start: 20070117
  5. ADRIAMYCIN PFS [Suspect]
     Indication: CHEMOTHERAPY
     Route: 042
     Dates: start: 20070117
  6. PNEUMOVAX 23 [Concomitant]
     Indication: PNEUMOCOCCAL INFECTION
     Dates: start: 20070207, end: 20070207

REACTIONS (5)
  - DEHYDRATION [None]
  - NAUSEA [None]
  - PYREXIA [None]
  - SEPSIS [None]
  - VOMITING [None]
